FAERS Safety Report 12457743 (Version 1)
Quarter: 2016Q2

REPORT INFORMATION
  Report Type: Spontaneous
  Country: RO (occurrence: RO)
  Receive Date: 20160611
  Receipt Date: 20160611
  Transmission Date: 20160815
  Serious: Yes (Other)
  Sender: FDA-Public Use
  Company Number: RO-AMGEN-ROUSP2016068941

PATIENT
  Age: 46 Year
  Sex: Female

DRUGS (5)
  1. ELOCOM [Concomitant]
     Active Substance: MOMETASONE FUROATE
     Indication: PUSTULAR PSORIASIS
     Dosage: UNK
  2. ENBREL [Suspect]
     Active Substance: ETANERCEPT
     Indication: PSORIASIS
     Dosage: 50 MG, WEEKLY
     Route: 058
     Dates: start: 201305
  3. DERMOVATE [Concomitant]
     Active Substance: CLOBETASOL
     Indication: PUSTULAR PSORIASIS
     Dosage: UNK
  4. NEOTIGASON [Concomitant]
     Active Substance: ACITRETIN
     Indication: PUSTULAR PSORIASIS
     Dosage: UNK
  5. ENBREL [Suspect]
     Active Substance: ETANERCEPT
     Indication: ANKYLOSING SPONDYLITIS

REACTIONS (5)
  - Decreased immune responsiveness [Not Recovered/Not Resolved]
  - Pustular psoriasis [Not Recovered/Not Resolved]
  - Asthenia [Not Recovered/Not Resolved]
  - Drug ineffective [Not Recovered/Not Resolved]
  - Psoriatic arthropathy [Not Recovered/Not Resolved]
